FAERS Safety Report 7587234-2 (Version None)
Quarter: 2011Q3

REPORT INFORMATION
  Report Type: 
  Country: None (occurrence: None)
  Receive Date: 20110701
  Receipt Date: 20110621
  Transmission Date: 20111222
  Serious: Yes (Hospitalization, Other)
  Sender: FDA-Public Use
  Company Number: US-ASTRAZENECA-2011SE37502

PATIENT
  Age: 57 Year
  Sex: Female

DRUGS (16)
  1. ATENOLOL [Concomitant]
     Indication: HYPERTENSION
     Route: 048
  2. MAXALT [Concomitant]
     Indication: MIGRAINE
     Route: 048
  3. NEXIUM [Suspect]
     Indication: GASTROOESOPHAGEAL REFLUX DISEASE
     Route: 048
  4. VALIUM [Concomitant]
     Indication: STRESS
     Route: 048
  5. CLONIDINE [Concomitant]
     Indication: HOT FLUSH
     Dosage: 0.1, DAILY
     Route: 048
  6. VITAMIN TAB [Concomitant]
     Indication: PAIN
     Route: 048
  7. ANASTROZOLE [Concomitant]
     Indication: HORMONE THERAPY
     Route: 048
  8. BUSPAR [Concomitant]
     Indication: SEDATIVE THERAPY
     Route: 048
  9. PRILOSEC OTC [Suspect]
     Route: 048
  10. ATENOLOL [Concomitant]
     Indication: ANXIETY
     Route: 048
  11. WELLBUTRIN SR [Concomitant]
     Indication: MIGRAINE
     Route: 048
  12. FLEXERIL [Concomitant]
     Indication: MIGRAINE
     Route: 048
  13. HORMONE PILLS [Suspect]
     Route: 065
  14. EXCEDRIN (MIGRAINE) [Concomitant]
     Indication: PAIN
     Route: 048
  15. PRILOSEC [Concomitant]
     Indication: GASTROOESOPHAGEAL REFLUX DISEASE
     Route: 048
  16. ADVIL LIQUI-GELS [Concomitant]
     Indication: PAIN
     Route: 048

REACTIONS (8)
  - RADIOTHERAPY [None]
  - TOOTH FRACTURE [None]
  - DRUG INEFFECTIVE [None]
  - MIGRAINE [None]
  - MALIGNANT TUMOUR EXCISION [None]
  - TOOTH EXTRACTION [None]
  - DENTAL CARE [None]
  - BREAST CANCER [None]
